FAERS Safety Report 15290843 (Version 2)
Quarter: 2018Q4

REPORT INFORMATION
  Report Type: Spontaneous
  Country: GB (occurrence: GB)
  Receive Date: 20180817
  Receipt Date: 20181031
  Transmission Date: 20190204
  Serious: Yes (Other)
  Sender: FDA-Public Use
  Company Number: GB-TEVA-2018-GB-944173

PATIENT
  Age: 61 Year
  Sex: Female
  Weight: 50.34 kg

DRUGS (3)
  1. CEFALEXIN [Suspect]
     Active Substance: CEPHALEXIN
     Indication: DIVERTICULITIS
     Dosage: 1500 MILLIGRAM DAILY;
     Route: 048
     Dates: start: 20180712, end: 20180713
  2. METRONIDAZOLE. [Suspect]
     Active Substance: METRONIDAZOLE
     Route: 048
     Dates: start: 20180712, end: 20180713
  3. METRONIDAZOLE. [Suspect]
     Active Substance: METRONIDAZOLE
     Indication: DIVERTICULITIS
     Dosage: 30 ML DAILY; TWO 5ML SPOONFULS
     Route: 048
     Dates: start: 20180713, end: 20180713

REACTIONS (14)
  - Product use complaint [Recovered/Resolved]
  - Oesophageal pain [Recovered/Resolved]
  - Dysgeusia [Recovered/Resolved]
  - Nausea [Recovered/Resolved]
  - Oral discomfort [Recovered/Resolved]
  - Dyspepsia [Recovered/Resolved]
  - Palpitations [Recovered/Resolved]
  - Dyspnoea [Recovered/Resolved]
  - Rash [Recovered/Resolved]
  - Cough [Recovered/Resolved]
  - Wrong technique in product usage process [Recovered/Resolved]
  - Hyperhidrosis [Recovered/Resolved]
  - Speech disorder [Recovered/Resolved]
  - Choking sensation [Recovered/Resolved]

NARRATIVE: CASE EVENT DATE: 20180713
